FAERS Safety Report 4931029-2 (Version None)
Quarter: 2006Q1

REPORT INFORMATION
  Report Type: 
  Country: None (occurrence: None)
  Receive Date: 20060227
  Receipt Date: 20060217
  Transmission Date: 20060701
  Serious: Yes (Hospitalization)
  Sender: FDA-Public Use
  Company Number: 2006-02-1076

PATIENT
  Age: 85 Year
  Sex: Male

DRUGS (2)
  1. FLUTAMIDE [Suspect]
     Indication: PROSTATE CANCER
     Dosage: ORAL
     Route: 048
     Dates: start: 20050516, end: 20060208
  2. LEUPLIN INJECTABLE [Suspect]
     Indication: PROSTATE CANCER
     Dosage: SUBCUTANEOUS
     Route: 058
     Dates: start: 20050516, end: 20060208

REACTIONS (1)
  - INTERSTITIAL LUNG DISEASE [None]
